FAERS Safety Report 8492588-9 (Version None)
Quarter: 2012Q2

REPORT INFORMATION
  Report Type: 
  Country: None (occurrence: None)
  Receive Date: 20120629
  Receipt Date: 20120629
  Transmission Date: 20120825
  Serious: No
  Sender: FDA-Public Use
  Company Number: None

PATIENT
  Age: 63 Year
  Sex: Female

DRUGS (9)
  1. MORPHINE [Concomitant]
  2. REVLIMID [Suspect]
     Indication: DIFFUSE LARGE B-CELL LYMPHOMA
     Dosage: 25 MG DAILY28D ORAL
     Route: 048
     Dates: start: 20120516, end: 20120612
  3. BARIUM SULFATE [Concomitant]
  4. ESCITALOPRAM [Concomitant]
  5. REVLIMID [Suspect]
     Dosage: 25 MG DAILY21D,7 D OFF ORAL
     Route: 048
     Dates: start: 20120626
  6. LORAZEPAM [Concomitant]
  7. HYDROCODONE BITARTRATE + ACETAMINOPHEN [Concomitant]
  8. OMEPRAZOLE [Concomitant]
  9. ONDANSETRON [Concomitant]

REACTIONS (3)
  - RASH ERYTHEMATOUS [None]
  - RASH PRURITIC [None]
  - NEUTROPHIL COUNT DECREASED [None]
